FAERS Safety Report 4912507-9 (Version None)
Quarter: 2006Q1

REPORT INFORMATION
  Report Type: 
  Country: None (occurrence: None)
  Receive Date: 20060215
  Receipt Date: 20050526
  Transmission Date: 20060701
  Serious: No
  Sender: FDA-Public Use
  Company Number: US-GLAXOSMITHKLINE-A0560273A

PATIENT
  Age: 76 Year
  Sex: Female

DRUGS (4)
  1. VALTREX [Suspect]
     Dosage: 1G THREE TIMES PER DAY
     Route: 048
     Dates: start: 20050523
  2. GLIPIZIDE [Concomitant]
  3. ASPIRIN [Concomitant]
  4. LANTUS [Concomitant]

REACTIONS (3)
  - DIZZINESS [None]
  - MEDICATION RESIDUE [None]
  - PAIN [None]
